FAERS Safety Report 5053266-1 (Version None)
Quarter: 2006Q3

REPORT INFORMATION
  Report Type: 
  Country: None (occurrence: None)
  Receive Date: 20060712
  Receipt Date: 20060629
  Transmission Date: 20061208
  Serious: Yes (Hospitalization)
  Sender: FDA-Public Use
  Company Number: 13436

PATIENT
  Age: 64 Year
  Sex: Female
  Weight: 65 kg

DRUGS (7)
  1. CARBOPLATIN [Suspect]
     Indication: OVARIAN CANCER
     Dosage: 490 MG IV
     Route: 042
     Dates: start: 20051229, end: 20051229
  2. CARBOPLATIN [Suspect]
  3. PRAZEPAM [Concomitant]
  4. LEVOTHYROXINE SODIUM [Concomitant]
  5. IMOVANE [Concomitant]
  6. XANAX [Concomitant]
  7. NEXIUM [Concomitant]

REACTIONS (4)
  - ABDOMINAL PAIN [None]
  - ANAPHYLACTOID REACTION [None]
  - HOT FLUSH [None]
  - MALAISE [None]
